FAERS Safety Report 6620318-1 (Version None)
Quarter: 2010Q1

REPORT INFORMATION
  Report Type: 
  Country: None (occurrence: None)
  Receive Date: 20100309
  Receipt Date: 20100219
  Transmission Date: 20100710
  Serious: Yes (Other)
  Sender: FDA-Public Use
  Company Number: US-JNJFOC-20100209321

PATIENT
  Age: 21 Year
  Sex: Female
  Weight: 49.9 kg

DRUGS (1)
  1. TYLENOL COLD MULTI-SYMPTOM NIGHTTIME RAPID RELEASE [Suspect]
     Indication: NASOPHARYNGITIS

REACTIONS (4)
  - DIZZINESS [None]
  - LOSS OF CONSCIOUSNESS [None]
  - NAUSEA [None]
  - PRODUCT TAMPERING [None]
